FAERS Safety Report 16812818 (Version 1)
Quarter: 2019Q3

REPORT INFORMATION
  Report Type: Spontaneous
  Country: ES (occurrence: ES)
  Receive Date: 20190916
  Receipt Date: 20190916
  Transmission Date: 20191005
  Serious: No
  Sender: FDA-Public Use
  Company Number: ES-JAZZ-2019-ES-003337

PATIENT
  Age: 3 Year
  Sex: Female

DRUGS (3)
  1. ERWINASE [Suspect]
     Active Substance: ASPARAGINASE ERWINIA CHRYSANTHEMI
     Indication: ACUTE LYMPHOCYTIC LEUKAEMIA
     Dosage: 12.8K IU PER TWO DAYS
     Route: 030
     Dates: start: 20180611
  2. METHOTREXATE. [Interacting]
     Active Substance: METHOTREXATE
     Indication: ACUTE LYMPHOCYTIC LEUKAEMIA
     Dosage: 2.5 MG PER WEEK
     Route: 048
     Dates: start: 20180605
  3. MERCAPTOPURINA [Interacting]
     Active Substance: MERCAPTOPURINE
     Indication: ACUTE LYMPHOCYTIC LEUKAEMIA
     Dosage: 12.5 MG PER DAY
     Route: 048
     Dates: start: 20180605

REACTIONS (1)
  - Impetigo [Recovered/Resolved]

NARRATIVE: CASE EVENT DATE: 20180613
